FAERS Safety Report 11704860 (Version 10)
Quarter: 2017Q2

REPORT INFORMATION
  Report Type: Report from Study
  Country: US (occurrence: US)
  Receive Date: 20151106
  Receipt Date: 20170413
  Transmission Date: 20170829
  Serious: Yes (Other)
  Sender: FDA-Public Use
  Company Number: US-REGENERON PHARMACEUTICALS, INC.-2015-13411

PATIENT

DRUGS (12)
  1. ALEVE [Concomitant]
     Active Substance: NAPROXEN SODIUM
     Indication: PAIN
  2. LUMIGAN [Concomitant]
     Active Substance: BIMATOPROST
     Indication: OPEN ANGLE GLAUCOMA
     Dosage: UNK UNK, QD
     Route: 047
     Dates: start: 20120222
  3. VITAMIN C [Concomitant]
     Active Substance: ASCORBIC ACID
     Indication: VITAMIN SUPPLEMENTATION
     Dosage: 1 TAB QD
     Route: 048
     Dates: start: 20111019
  4. BABY ASPIRIN [Concomitant]
     Active Substance: ASPIRIN
     Indication: JOINT SWELLING
     Dosage: 81 MG MILLIGRAM(S), QD
     Route: 048
     Dates: start: 20150930
  5. ALEVE [Concomitant]
     Active Substance: NAPROXEN SODIUM
     Indication: HEADACHE
     Dosage: 400 MG MILLIGRAM(S), AS NECESSARY
     Route: 048
     Dates: start: 2005
  6. FUROSEMIDE. [Concomitant]
     Active Substance: FUROSEMIDE
     Indication: JOINT SWELLING
     Dosage: 20 MG MILLIGRAM(S), QD
     Route: 048
     Dates: start: 20150930
  7. CELEBREX [Concomitant]
     Active Substance: CELECOXIB
     Indication: PRODUCT USED FOR UNKNOWN INDICATION
     Dosage: 200 MG MILLIGRAM(S), QD
     Route: 048
     Dates: start: 20151113
  8. VITAMIN D                          /00107901/ [Concomitant]
     Active Substance: ERGOCALCIFEROL
     Indication: VITAMIN SUPPLEMENTATION
     Dosage: 1 TAB QD
     Route: 048
     Dates: start: 20111019
  9. ALEVE [Concomitant]
     Active Substance: NAPROXEN SODIUM
     Indication: INTERVERTEBRAL DISC DEGENERATION
  10. EYLEA [Suspect]
     Active Substance: AFLIBERCEPT
     Indication: NEOVASCULAR AGE-RELATED MACULAR DEGENERATION
     Dosage: 2MG, Q4WKS
     Route: 031
     Dates: start: 20150731, end: 20150930
  11. DORZOLAMIDE [Concomitant]
     Active Substance: DORZOLAMIDE
     Indication: OPEN ANGLE GLAUCOMA
     Dosage: 1 GTT DROP(S), BID
     Route: 047
     Dates: start: 20150625
  12. BABY ASPIRIN [Concomitant]
     Active Substance: ASPIRIN
     Indication: THROMBOSIS PROPHYLAXIS

REACTIONS (1)
  - Open angle glaucoma [Not Recovered/Not Resolved]

NARRATIVE: CASE EVENT DATE: 20151022
